FAERS Safety Report 8736732 (Version 2)
Quarter: 2012Q4

REPORT INFORMATION
  Report Type: 
  Country: US (occurrence: US)
  Receive Date: 20120822
  Receipt Date: 20120906
  Transmission Date: 20130627
  Serious: Yes (Life-Threatening, Other)
  Sender: FDA-Public Use
  Company Number: US-JNJFOC-20120807777

PATIENT
  Sex: Female
  Weight: 113.3 kg

DRUGS (19)
  1. XARELTO [Suspect]
     Indication: THROMBOSIS PROPHYLAXIS
     Route: 048
     Dates: start: 20120613, end: 20120615
  2. XARELTO [Suspect]
     Indication: KNEE ARTHROPLASTY
     Route: 048
     Dates: start: 20120613, end: 20120615
  3. ASCORBIC ACID [Concomitant]
     Route: 048
     Dates: start: 20120614
  4. CARVEDILOL [Concomitant]
     Dates: start: 20120613
  5. DOCUSATE SODIUM [Concomitant]
     Route: 048
     Dates: start: 20120613
  6. FERROUS SULFATE [Concomitant]
     Route: 048
     Dates: start: 20120614
  7. FOLIC ACID [Concomitant]
     Route: 048
  8. GABAPENTIN [Concomitant]
     Route: 048
     Dates: start: 20120613
  9. GLIPIZIDE XL [Concomitant]
     Route: 048
     Dates: start: 20120613
  10. HYDROCHLOROTHIAZIDE [Concomitant]
     Route: 048
     Dates: start: 20120613
  11. INSULIN ASPART [Concomitant]
     Dosage: 100 units/mL per sliding scale
     Dates: start: 20120614
  12. LACTULOSE [Concomitant]
     Route: 048
     Dates: start: 20120613
  13. LISINOPRIL [Concomitant]
     Route: 048
     Dates: start: 20120613
  14. PANTOPRAZOLE SODIUM [Concomitant]
     Route: 048
     Dates: start: 20120613
  15. ACETAMINOPHEN [Concomitant]
     Route: 048
     Dates: start: 20120613
  16. BALMEX [Concomitant]
     Route: 061
     Dates: start: 20120614
  17. NORCO [Concomitant]
     Dates: start: 20120617
  18. MAGNESIUM HYDROXIDE [Concomitant]
     Route: 048
  19. SENNA [Concomitant]
     Route: 048

REACTIONS (1)
  - Haemoglobin decreased [Recovering/Resolving]
